FAERS Safety Report 6019954-5 (Version None)
Quarter: 2008Q4

REPORT INFORMATION
  Report Type: 
  Country: None (occurrence: None)
  Receive Date: 20081223
  Receipt Date: 20081216
  Transmission Date: 20090506
  Serious: Yes (Hospitalization)
  Sender: FDA-Public Use
  Company Number: 08-002020

PATIENT
  Sex: Male

DRUGS (2)
  1. DONOVEX   (CALCIPOTRIENE) OINTMENT, 0.005% [Suspect]
     Dosage: , TOPICAL
  2. DONOVEX (CALCIPOTRIENE) CREAM, 0.005% [Suspect]
     Indication: PSORIASIS

REACTIONS (2)
  - DRUG EFFECT DECREASED [None]
  - NEPHROLITHIASIS [None]
